FAERS Safety Report 12233053 (Version 1)
Quarter: 2016Q2

REPORT INFORMATION
  Report Type: Other
  Country: GB (occurrence: GB)
  Receive Date: 20160403
  Receipt Date: 20160403
  Transmission Date: 20160815
  Serious: Yes (Other)
  Sender: FDA-Public Use
  Company Number: GB-MYLANLABS-2016M1013272

PATIENT

DRUGS (4)
  1. LANSOPRAZOLE. [Concomitant]
     Active Substance: LANSOPRAZOLE
     Dosage: UNK
  2. CLOPIDOGREL [Suspect]
     Active Substance: CLOPIDOGREL BISULFATE
     Indication: ESSENTIAL THROMBOCYTHAEMIA
     Dosage: 75 MG, QD
     Route: 048
     Dates: start: 20160311, end: 20160315
  3. RAMIPRIL. [Concomitant]
     Active Substance: RAMIPRIL
     Dosage: UNK
  4. HYDROXYCARBAMIDE [Concomitant]
     Active Substance: HYDROXYUREA
     Dosage: UNK

REACTIONS (6)
  - Varicose vein [Not Recovered/Not Resolved]
  - Arthropathy [Not Recovered/Not Resolved]
  - Pruritus [Not Recovered/Not Resolved]
  - Vasodilatation [Not Recovered/Not Resolved]
  - Arthralgia [Not Recovered/Not Resolved]
  - Vascular pain [Not Recovered/Not Resolved]

NARRATIVE: CASE EVENT DATE: 20160314
